FAERS Safety Report 15897033 (Version 1)
Quarter: 2019Q1

REPORT INFORMATION
  Report Type: Spontaneous
  Country: JP (occurrence: JP)
  Receive Date: 20190131
  Receipt Date: 20190131
  Transmission Date: 20190417
  Serious: Yes (Other)
  Sender: FDA-Public Use
  Company Number: JP-PFIZER INC-2019036668

PATIENT
  Sex: Male

DRUGS (1)
  1. GENOTROPIN GOQUICK 5.3MG [Suspect]
     Active Substance: SOMATROPIN
     Dosage: UNK

REACTIONS (4)
  - Dizziness [Unknown]
  - Blood pressure increased [Unknown]
  - Immobile [Unknown]
  - Fall [Unknown]

NARRATIVE: CASE EVENT DATE: 20190123
